FAERS Safety Report 6214177-9 (Version None)
Quarter: 2009Q2

REPORT INFORMATION
  Report Type: 
  Country: None (occurrence: None)
  Receive Date: 20090604
  Receipt Date: 20090526
  Transmission Date: 20091009
  Serious: Yes (Hospitalization)
  Sender: FDA-Public Use
  Company Number: ES-BAYER-200920170GPV

PATIENT
  Age: 44 Year
  Sex: Female
  Weight: 70 kg

DRUGS (1)
  1. ACTIRA [Suspect]
     Indication: ALLERGY TEST
     Dosage: UNIT DOSE: 400 MG
     Route: 065
     Dates: start: 20090210, end: 20090210

REACTIONS (10)
  - CSF PROTEIN INCREASED [None]
  - HEADACHE [None]
  - HYPOAESTHESIA [None]
  - HYPOAESTHESIA FACIAL [None]
  - MALAISE [None]
  - MENINGISM [None]
  - NUCHAL RIGIDITY [None]
  - PARAESTHESIA [None]
  - POLYNEUROPATHY [None]
  - RADICULOPATHY [None]
